FAERS Safety Report 17033108 (Version 2)
Quarter: 2020Q1

REPORT INFORMATION
  Report Type: Report from Study
  Country: GB (occurrence: GB)
  Receive Date: 20191114
  Receipt Date: 20200113
  Transmission Date: 20200409
  Serious: Yes (Hospitalization, Other)
  Sender: FDA-Public Use
  Company Number: GB-AMGEN-GBRSL2019186883

PATIENT
  Age: 73 Year
  Sex: Female

DRUGS (1)
  1. AMGEVITA [Suspect]
     Active Substance: ADALIMUMAB
     Indication: PRODUCT USED FOR UNKNOWN INDICATION
     Dosage: 40 MILLIGRAM, Q2WK
     Route: 065

REACTIONS (4)
  - Therapeutic product effect incomplete [Unknown]
  - Joint swelling [Unknown]
  - Hallucination [Unknown]
  - Infusion [Not Recovered/Not Resolved]

NARRATIVE: CASE EVENT DATE: 201910
